FAERS Safety Report 20134147 (Version 1)
Quarter: 2021Q4

REPORT INFORMATION
  Report Type: Spontaneous
  Country: PT (occurrence: PT)
  Receive Date: 20211201
  Receipt Date: 20211201
  Transmission Date: 20220304
  Serious: Yes (Congenital Anomaly, Other)
  Sender: FDA-Public Use
  Company Number: PT-ABBVIE-21K-130-4180221-00

PATIENT
  Sex: Female

DRUGS (2)
  1. VALPROATE SODIUM [Suspect]
     Active Substance: VALPROATE SODIUM
     Indication: Maternal exposure timing unspecified
     Route: 064
  2. VALPROATE SODIUM [Suspect]
     Active Substance: VALPROATE SODIUM
     Route: 063

REACTIONS (11)
  - Pneumonia [Unknown]
  - Sepsis neonatal [Unknown]
  - Seizure [Unknown]
  - Developmental delay [Unknown]
  - Speech disorder developmental [Unknown]
  - Macrocephaly [Unknown]
  - Gait inability [Unknown]
  - Foetal exposure during pregnancy [Unknown]
  - Respiratory disorder [Unknown]
  - Ear infection [Unknown]
  - Exposure via breast milk [Unknown]
